FAERS Safety Report 12696569 (Version 20)
Quarter: 2019Q2

REPORT INFORMATION
  Report Type: Spontaneous
  Country: CA (occurrence: CA)
  Receive Date: 20160830
  Receipt Date: 20190527
  Transmission Date: 20190711
  Serious: Yes (Hospitalization, Other)
  Sender: FDA-Public Use
  Company Number: CA-ORION CORPORATION ORION PHARMA-TREX2016-1473

PATIENT
  Age: 78 Year
  Sex: Female

DRUGS (65)
  1. MOTRIN [Suspect]
     Active Substance: IBUPROFEN
     Indication: PAIN
  2. ARAVA [Suspect]
     Active Substance: LEFLUNOMIDE
     Indication: MOBILITY DECREASED
  3. ARAVA [Suspect]
     Active Substance: LEFLUNOMIDE
     Indication: JOINT STIFFNESS
  4. NAPROSYN [Suspect]
     Active Substance: NAPROXEN
     Indication: RHEUMATOID ARTHRITIS
     Route: 065
  5. NAPROSYN [Suspect]
     Active Substance: NAPROXEN
     Indication: MOBILITY DECREASED
  6. PLAQUENIL [Suspect]
     Active Substance: HYDROXYCHLOROQUINE SULFATE
     Indication: RHEUMATOID ARTHRITIS
     Route: 065
  7. VOLTAREN [Suspect]
     Active Substance: DICLOFENAC SODIUM
     Indication: PAIN
  8. TRAMADOL HYDROCHLORIDE. [Suspect]
     Active Substance: TRAMADOL HYDROCHLORIDE
     Indication: RHEUMATOID ARTHRITIS
     Route: 065
  9. MOTRIN [Suspect]
     Active Substance: IBUPROFEN
     Indication: RHEUMATOID ARTHRITIS
     Route: 065
  10. ASPIRIN. [Suspect]
     Active Substance: ASPIRIN
     Indication: MOBILITY DECREASED
  11. GOLD [Suspect]
     Active Substance: GOLD
     Indication: PAIN
  12. ACETYLSALICYLIC ACID [Suspect]
     Active Substance: ASPIRIN
     Indication: JOINT STIFFNESS
  13. DICLOFENAC POTASSIUM. [Suspect]
     Active Substance: DICLOFENAC POTASSIUM
     Indication: RHEUMATOID ARTHRITIS
     Route: 065
  14. SODIUM AUROTHIOMALATE [Suspect]
     Active Substance: GOLD SODIUM THIOMALATE
     Indication: RHEUMATOID ARTHRITIS
     Route: 051
  15. SODIUM AUROTHIOMALATE [Suspect]
     Active Substance: GOLD SODIUM THIOMALATE
     Route: 048
  16. DICLOFENAC [Suspect]
     Active Substance: DICLOFENAC
     Indication: RHEUMATOID ARTHRITIS
     Route: 065
  17. ENBREL [Suspect]
     Active Substance: ETANERCEPT
     Indication: RHEUMATOID ARTHRITIS
     Route: 058
  18. ASPIRIN. [Suspect]
     Active Substance: ASPIRIN
     Indication: RHEUMATOID ARTHRITIS
     Route: 065
  19. HUMIRA [Suspect]
     Active Substance: ADALIMUMAB
     Indication: JOINT STIFFNESS
  20. PLAQUENIL [Suspect]
     Active Substance: HYDROXYCHLOROQUINE SULFATE
     Indication: MOBILITY DECREASED
  21. APO-HYDROXYQUINE [Suspect]
     Active Substance: HYDROXYCHLOROQUINE SULFATE
     Indication: RHEUMATOID ARTHRITIS
     Route: 065
  22. VITAMIN C [Suspect]
     Active Substance: ASCORBIC ACID
     Indication: RHEUMATOID ARTHRITIS
     Route: 065
  23. TRAMADOL. [Suspect]
     Active Substance: TRAMADOL
     Indication: PRODUCT USED FOR UNKNOWN INDICATION
     Route: 065
  24. METHOTREXATE (TRADE NAME UNKNOWN) [Suspect]
     Active Substance: METHOTREXATE
     Indication: JOINT STIFFNESS
  25. HUMIRA [Suspect]
     Active Substance: ADALIMUMAB
     Indication: PAIN
  26. GOLD [Suspect]
     Active Substance: GOLD
     Indication: JOINT STIFFNESS
  27. APO ASA [Suspect]
     Active Substance: ASPIRIN
     Indication: RHEUMATOID ARTHRITIS
     Route: 065
  28. ARAVA [Suspect]
     Active Substance: LEFLUNOMIDE
     Indication: PAIN
     Route: 065
  29. ASPIRIN. [Suspect]
     Active Substance: ASPIRIN
     Indication: JOINT STIFFNESS
  30. HUMIRA [Suspect]
     Active Substance: ADALIMUMAB
     Indication: RHEUMATOID ARTHRITIS
     Route: 058
  31. VOLTAREN [Suspect]
     Active Substance: DICLOFENAC SODIUM
     Indication: MOBILITY DECREASED
  32. HYDROXYCHLOROQUINE SULFATE. [Suspect]
     Active Substance: HYDROXYCHLOROQUINE SULFATE
     Indication: RHEUMATOID ARTHRITIS
     Route: 065
  33. APO-SULFATRIM [Suspect]
     Active Substance: SULFAMETHOXAZOLE\TRIMETHOPRIM
     Indication: RHEUMATOID ARTHRITIS
     Route: 065
  34. MOTRIN [Suspect]
     Active Substance: IBUPROFEN
     Indication: MOBILITY DECREASED
  35. ASPIRIN. [Suspect]
     Active Substance: ASPIRIN
     Indication: PAIN
  36. HUMIRA [Suspect]
     Active Substance: ADALIMUMAB
     Indication: MOBILITY DECREASED
  37. PLAQUENIL [Suspect]
     Active Substance: HYDROXYCHLOROQUINE SULFATE
     Indication: PAIN
     Route: 048
  38. ACETYLSALICYLIC ACID [Suspect]
     Active Substance: ASPIRIN
     Indication: RHEUMATOID ARTHRITIS
     Route: 065
  39. APO-DICLOFENAC [Suspect]
     Active Substance: DICLOFENAC
     Indication: RHEUMATOID ARTHRITIS
     Route: 065
  40. SODIUM AUROTHIOMALATE [Suspect]
     Active Substance: GOLD SODIUM THIOMALATE
     Route: 065
  41. SULFAMETHOXAZOLE AND TRIMETHOPRIM [Suspect]
     Active Substance: SULFAMETHOXAZOLE\TRIMETHOPRIM
     Indication: RHEUMATOID ARTHRITIS
     Route: 065
  42. TRIMETHOPRIM. [Suspect]
     Active Substance: TRIMETHOPRIM
     Indication: RHEUMATOID ARTHRITIS
     Route: 065
  43. NAPROXEN SODIUM. [Suspect]
     Active Substance: NAPROXEN SODIUM
     Indication: RHEUMATOID ARTHRITIS
     Route: 065
  44. METHOTREXATE (TRADE NAME UNKNOWN) [Suspect]
     Active Substance: METHOTREXATE
     Indication: RHEUMATOID ARTHRITIS
     Route: 065
  45. METHOTREXATE (TRADE NAME UNKNOWN) [Suspect]
     Active Substance: METHOTREXATE
     Indication: PAIN
  46. ENBREL [Suspect]
     Active Substance: ETANERCEPT
     Indication: PAIN
     Route: 065
  47. MOTRIN [Suspect]
     Active Substance: IBUPROFEN
     Indication: JOINT STIFFNESS
  48. HYDROXYCHLOROQUINE [Suspect]
     Active Substance: HYDROXYCHLOROQUINE
     Indication: RHEUMATOID ARTHRITIS
     Route: 065
  49. NAPROSYN [Suspect]
     Active Substance: NAPROXEN
     Indication: PAIN
  50. GOLD [Suspect]
     Active Substance: GOLD
     Indication: RHEUMATOID ARTHRITIS
     Route: 065
  51. PLAQUENIL [Suspect]
     Active Substance: HYDROXYCHLOROQUINE SULFATE
     Indication: JOINT STIFFNESS
  52. VOLTAREN [Suspect]
     Active Substance: DICLOFENAC SODIUM
     Indication: JOINT STIFFNESS
  53. METHOTREXATE (TRADE NAME UNKNOWN) [Suspect]
     Active Substance: METHOTREXATE
     Indication: MOBILITY DECREASED
  54. ARAVA [Suspect]
     Active Substance: LEFLUNOMIDE
     Indication: RHEUMATOID ARTHRITIS
     Route: 048
  55. NAPROSYN [Suspect]
     Active Substance: NAPROXEN
     Indication: JOINT STIFFNESS
  56. GOLD [Suspect]
     Active Substance: GOLD
     Indication: MOBILITY DECREASED
  57. VOLTAREN [Suspect]
     Active Substance: DICLOFENAC SODIUM
     Indication: RHEUMATOID ARTHRITIS
     Route: 065
  58. ACETYLSALICYLIC ACID [Suspect]
     Active Substance: ASPIRIN
     Indication: PAIN
  59. ACETYLSALICYLIC ACID [Suspect]
     Active Substance: ASPIRIN
     Indication: MOBILITY DECREASED
  60. HYDROXYCHLOROQUINE SULFATE. [Suspect]
     Active Substance: HYDROXYCHLOROQUINE SULFATE
     Route: 048
  61. SULFAMETHOXAZOLE [Suspect]
     Active Substance: SULFAMETHOXAZOLE
     Indication: RHEUMATOID ARTHRITIS
     Route: 065
  62. CLOPIDOGREL [Suspect]
     Active Substance: CLOPIDOGREL BISULFATE
     Indication: RHEUMATOID ARTHRITIS
     Route: 065
  63. APO HYDROXYCHLOROQUINE [Suspect]
     Active Substance: HYDROXYCHLOROQUINE
     Indication: RHEUMATOID ARTHRITIS
     Route: 065
  64. ENBREL [Suspect]
     Active Substance: ETANERCEPT
     Indication: MOBILITY DECREASED
  65. ENBREL [Suspect]
     Active Substance: ETANERCEPT
     Indication: JOINT STIFFNESS

REACTIONS (26)
  - Gastrointestinal pain [Not Recovered/Not Resolved]
  - Abnormal loss of weight [Not Recovered/Not Resolved]
  - Feeding disorder [Not Recovered/Not Resolved]
  - Abdominal discomfort [Not Recovered/Not Resolved]
  - Abdominal pain upper [Not Recovered/Not Resolved]
  - Off label use [Unknown]
  - Vomiting [Not Recovered/Not Resolved]
  - Ear infection [Not Recovered/Not Resolved]
  - Eating disorder [Unknown]
  - Musculoskeletal disorder [Not Recovered/Not Resolved]
  - Adverse drug reaction [Not Recovered/Not Resolved]
  - Weight decreased [Not Recovered/Not Resolved]
  - Headache [Not Recovered/Not Resolved]
  - Nausea [Not Recovered/Not Resolved]
  - Arthropathy [Not Recovered/Not Resolved]
  - Dizziness [Not Recovered/Not Resolved]
  - Functional gastrointestinal disorder [Not Recovered/Not Resolved]
  - Deafness transitory [Not Recovered/Not Resolved]
  - Shoulder arthroplasty [Not Recovered/Not Resolved]
  - Foot operation [Not Recovered/Not Resolved]
  - Pharyngitis [Not Recovered/Not Resolved]
  - Gastrointestinal disorder [Not Recovered/Not Resolved]
  - Decreased appetite [Not Recovered/Not Resolved]
  - Hypophagia [Not Recovered/Not Resolved]
  - Drug hypersensitivity [Not Recovered/Not Resolved]
  - Deafness [Not Recovered/Not Resolved]
